FAERS Safety Report 16250998 (Version 2)
Quarter: 2019Q2

REPORT INFORMATION
  Report Type: Spontaneous
  Country: US (occurrence: US)
  Receive Date: 20190429
  Receipt Date: 20190627
  Transmission Date: 20190711
  Serious: No
  Sender: FDA-Public Use
  Company Number: US-PFIZER INC-2019177432

PATIENT
  Age: 53 Year
  Sex: Female
  Weight: 77.98 kg

DRUGS (1)
  1. IBRANCE [Suspect]
     Active Substance: PALBOCICLIB
     Indication: BREAST CANCER METASTATIC
     Dosage: 125 MG, CYCLIC(D 1-21 Q 28 DAYS)
     Route: 048
     Dates: start: 20190331

REACTIONS (3)
  - Oral pain [Unknown]
  - Fatigue [Unknown]
  - White blood cell count decreased [Unknown]
